FAERS Safety Report 6690899-0 (Version None)
Quarter: 2010Q2

REPORT INFORMATION
  Report Type: 
  Country: None (occurrence: None)
  Receive Date: 20100421
  Receipt Date: 20100412
  Transmission Date: 20101027
  Serious: Yes (Other)
  Sender: FDA-Public Use
  Company Number: BR-SANOFI-AVENTIS-2010SA021612

PATIENT
  Sex: Female

DRUGS (6)
  1. LANTUS [Suspect]
     Indication: TYPE 1 DIABETES MELLITUS
     Route: 058
  2. OPTIPEN [Suspect]
  3. LOSARTAN POTASSIUM [Concomitant]
     Indication: HYPERTENSION
     Dosage: 1 TABLET
     Route: 048
  4. AMLODIPINE [Concomitant]
     Indication: HYPERTENSION
     Dosage: 1 TABLET
     Route: 048
  5. BIOVIR [Concomitant]
     Indication: ANTIRETROVIRAL THERAPY
     Dosage: 1 TABLET
     Route: 048
     Dates: start: 20020101
  6. EFAVIRENZ [Concomitant]
     Indication: ANTIRETROVIRAL THERAPY
     Dosage: 1 TABLET
     Route: 048
     Dates: start: 20020101

REACTIONS (6)
  - AMNESIA [None]
  - DYSPNOEA [None]
  - HYPERTENSION [None]
  - HYPOGLYCAEMIA [None]
  - MUSCULAR WEAKNESS [None]
  - RENAL FAILURE CHRONIC [None]
